FAERS Safety Report 13138501 (Version 1)
Quarter: 2017Q1

REPORT INFORMATION
  Report Type: Spontaneous
  Country: US (occurrence: US)
  Receive Date: 20170123
  Receipt Date: 20170123
  Transmission Date: 20170428
  Serious: No
  Sender: FDA-Public Use
  Company Number: US-UNITED THERAPEUTICS-UNT-2016-012537

PATIENT
  Age: 51 Year
  Sex: Male
  Weight: 79.2 kg

DRUGS (2)
  1. REMODULIN [Suspect]
     Active Substance: TREPROSTINIL
     Indication: PULMONARY ARTERIAL HYPERTENSION
     Dosage: 0.002 ?G/KG, CONTINUING
     Route: 058
     Dates: start: 20160802
  2. SILDENAFIL. [Concomitant]
     Active Substance: SILDENAFIL
     Indication: PRODUCT USED FOR UNKNOWN INDICATION

REACTIONS (6)
  - Localised oedema [Unknown]
  - Infusion site pain [Recovering/Resolving]
  - Infusion site erythema [Recovering/Resolving]
  - Oedema peripheral [Unknown]
  - Pain in jaw [Unknown]
  - Infusion site irritation [Unknown]

NARRATIVE: CASE EVENT DATE: 201608
